FAERS Safety Report 12180116 (Version 1)
Quarter: 2016Q1

REPORT INFORMATION
  Report Type: Spontaneous
  Country: US (occurrence: US)
  Receive Date: 20160315
  Receipt Date: 20160315
  Transmission Date: 20160526
  Serious: Yes (Other)
  Sender: FDA-Public Use
  Company Number: US-PFIZER INC-2016148476

PATIENT
  Age: 58 Year
  Sex: Female
  Weight: 55.34 kg

DRUGS (1)
  1. DEPO-MEDROL [Suspect]
     Active Substance: METHYLPREDNISOLONE ACETATE
     Indication: PURPURA
     Dosage: 120MG INJECTION
     Route: 030
     Dates: start: 20160125

REACTIONS (7)
  - Haematoma [Unknown]
  - Rash generalised [Not Recovered/Not Resolved]
  - Red blood cell count increased [Unknown]
  - Vasculitis [Not Recovered/Not Resolved]
  - Drug ineffective [Recovering/Resolving]
  - Contusion [Recovering/Resolving]
  - Ecchymosis [Unknown]

NARRATIVE: CASE EVENT DATE: 20160126
